FAERS Safety Report 4269663-8 (Version None)
Quarter: 2004Q1

REPORT INFORMATION
  Report Type: 
  Country: None (occurrence: None)
  Receive Date: 20040109
  Receipt Date: 20031230
  Transmission Date: 20041129
  Serious: Yes (Death)
  Sender: FDA-Public Use
  Company Number: US-JNJFOC-20030906354

PATIENT
  Age: 37 Year
  Sex: Female

DRUGS (6)
  1. RISPERDAL [Suspect]
  2. HYDROXYZINE [Concomitant]
  3. BENZTROPINE MESYLATE [Concomitant]
  4. GEODON [Concomitant]
  5. TRAZODONE HCL [Concomitant]
  6. ZOLOFT [Concomitant]

REACTIONS (1)
  - COMPLETED SUICIDE [None]
